FAERS Safety Report 15187200 (Version 2)
Quarter: 2019Q1

REPORT INFORMATION
  Report Type: Report from Study
  Country: US (occurrence: US)
  Receive Date: 20180723
  Receipt Date: 20190130
  Transmission Date: 20190417
  Serious: No
  Sender: FDA-Public Use
  Company Number: US-EXELIXIS-CABO-17011624

PATIENT
  Sex: Male

DRUGS (1)
  1. CABOMETYX [Suspect]
     Active Substance: CABOZANTINIB S-MALATE
     Indication: NEOPLASM MALIGNANT
     Dosage: 20 MG, TID
     Route: 048
     Dates: start: 20170117, end: 20171206

REACTIONS (3)
  - Off label use [Unknown]
  - Drug ineffective [Unknown]
  - Malaise [Unknown]
